FAERS Safety Report 7273443-9 (Version None)
Quarter: 2011Q1

REPORT INFORMATION
  Report Type: 
  Country: None (occurrence: None)
  Receive Date: 20110203
  Receipt Date: 20110127
  Transmission Date: 20110831
  Serious: Yes (Other)
  Sender: FDA-Public Use
  Company Number: GB-PFIZER INC-2011021926

PATIENT
  Age: 65 Year
  Sex: Male

DRUGS (1)
  1. EPANUTIN [Suspect]
     Dosage: 300 MG, UNK

REACTIONS (2)
  - TERMINAL STATE [None]
  - DYSPHAGIA [None]
